FAERS Safety Report 4336565-8 (Version None)
Quarter: 2004Q2

REPORT INFORMATION
  Report Type: 
  Country: None (occurrence: None)
  Receive Date: 20040407
  Receipt Date: 20040331
  Transmission Date: 20050107
  Serious: Yes (Hospitalization)
  Sender: FDA-Public Use
  Company Number: 200410173BFR

PATIENT
  Age: 83 Year
  Sex: Male

DRUGS (6)
  1. MOXIFLOXACIN HYDROCHLORIDE [Suspect]
     Indication: LUNG INFECTION
     Dosage: 400 MG, TOTAL DAILY, ORAL
     Route: 048
     Dates: start: 20040106, end: 20040116
  2. ACETYLCYSTEINE [Concomitant]
  3. FRAXIPARIN [Concomitant]
  4. LASIX [Concomitant]
  5. CORDARONE [Concomitant]
  6. ADANCOR [Concomitant]

REACTIONS (4)
  - CONVULSION [None]
  - DEHYDRATION [None]
  - FACIAL PALSY [None]
  - MONOPLEGIA [None]
